FAERS Safety Report 5744324-4 (Version None)
Quarter: 2008Q2

REPORT INFORMATION
  Report Type: 
  Country: None (occurrence: None)
  Receive Date: 20080520
  Receipt Date: 20080505
  Transmission Date: 20081010
  Serious: Yes (Hospitalization)
  Sender: FDA-Public Use
  Company Number: US-ROCHE-563120

PATIENT
  Sex: Female
  Weight: 69.4 kg

DRUGS (4)
  1. BLINDED PEG-INTERFERON ALFA 2A [Suspect]
     Dosage: THERAPY TEMPORARILY DISCONTINUED.
     Route: 065
     Dates: start: 20080214, end: 20080501
  2. RIBAVIRIN [Suspect]
     Dosage: THERAPY TEMPORARILY DISCONTINUED.
     Route: 065
     Dates: start: 20080214, end: 20080501
  3. BLINDED NITAZOXANIDE [Suspect]
     Dosage: THERAPY TEMPORARILY DISCONTINUED.
     Route: 065
     Dates: start: 20080214, end: 20080501
  4. NEXIUM [Concomitant]
     Dates: start: 20050215

REACTIONS (1)
  - LARYNGEAL OEDEMA [None]
